FAERS Safety Report 16758670 (Version 1)
Quarter: 2019Q3

REPORT INFORMATION
  Report Type: Spontaneous
  Country: FR (occurrence: FR)
  Receive Date: 20190830
  Receipt Date: 20190830
  Transmission Date: 20191005
  Serious: Yes (Other)
  Sender: FDA-Public Use
  Company Number: FR-TEVA-2019-FR-1100011

PATIENT
  Age: 65 Year
  Sex: Female

DRUGS (2)
  1. METHOTREXATE. [Concomitant]
     Active Substance: METHOTREXATE
     Indication: RHEUMATOID ARTHRITIS
  2. AMOXICILLINE [Suspect]
     Active Substance: AMOXICILLIN
     Indication: INFLUENZA LIKE ILLNESS
     Dosage: 2 GRAM PER DAY
     Route: 048
     Dates: start: 201904, end: 201904

REACTIONS (1)
  - Dermatitis exfoliative generalised [Recovered/Resolved]

NARRATIVE: CASE EVENT DATE: 201904
